FAERS Safety Report 8107274-4 (Version None)
Quarter: 2012Q1

REPORT INFORMATION
  Report Type: 
  Country: None (occurrence: None)
  Receive Date: 20120202
  Receipt Date: 20120127
  Transmission Date: 20120608
  Serious: Yes (Other)
  Sender: FDA-Public Use
  Company Number: US-PFIZER INC-2012023537

PATIENT
  Sex: Male
  Weight: 84.354 kg

DRUGS (6)
  1. NEURONTIN [Suspect]
     Indication: NECK PAIN
  2. AMITRIPTYLINE [Concomitant]
     Indication: NECK PAIN
  3. AMITRIPTYLINE [Concomitant]
     Indication: NEURALGIA
     Dosage: 50 MG
  4. ACETYLSALICYLIC ACID [Concomitant]
     Dosage: UNK
  5. LISINOPRIL [Concomitant]
     Dosage: 2.5 MG
  6. NEURONTIN [Suspect]
     Indication: NEURALGIA
     Dosage: 800 MG
     Route: 048

REACTIONS (3)
  - DYSPNOEA [None]
  - ARTERIAL OCCLUSIVE DISEASE [None]
  - ULCER HAEMORRHAGE [None]
